FAERS Safety Report 8594075-6 (Version None)
Quarter: 2012Q3

REPORT INFORMATION
  Report Type: 
  Country: None (occurrence: None)
  Receive Date: 20120814
  Receipt Date: 20120703
  Transmission Date: 20120928
  Serious: Yes (Hospitalization)
  Sender: FDA-Public Use
  Company Number: JP-009507513-1207JPN000024

PATIENT

DRUGS (3)
  1. INTERFERON BETA NOS [Suspect]
     Indication: HEPATITIS C
     Dosage: 6 MILLION IU, ONCE
     Route: 041
     Dates: start: 20100520, end: 20100603
  2. INTERFERON BETA NOS [Suspect]
     Dosage: 6 MILLION IU, TIW
     Route: 041
     Dates: start: 20100604, end: 20111007
  3. REBETOL [Suspect]
     Indication: HEPATITIS C
     Dosage: 200MG IN MORNING AND 400MG IN EVENING
     Route: 048
     Dates: start: 20100520, end: 20111013

REACTIONS (4)
  - ANXIETY [None]
  - HYPOPROTEINAEMIA [None]
  - PLATELET COUNT DECREASED [None]
  - DECREASED APPETITE [None]
